FAERS Safety Report 7595152-9 (Version None)
Quarter: 2011Q2

REPORT INFORMATION
  Report Type: 
  Country: None (occurrence: None)
  Receive Date: 20110620
  Receipt Date: 20110329
  Transmission Date: 20111010
  Serious: Yes (Death, Hospitalization)
  Sender: FDA-Public Use
  Company Number: UTC-005999

PATIENT
  Age: 61 Year
  Sex: Female
  Weight: 76.8 kg

DRUGS (4)
  1. TYVASO [Suspect]
     Indication: PULMONARY ARTERIAL HYPERTENSION
     Dosage: 144 MCG (36 MCG, 4 IN 1 D), INHALATION
     Route: 055
     Dates: start: 20091007
  2. DIURETICS (DIURETICS0 [Concomitant]
  3. CITALOPRAM HYDROBROMIDE [Concomitant]
  4. LETAIRIS [Concomitant]

REACTIONS (1)
  - PULMONARY HYPERTENSION [None]
